FAERS Safety Report 16783284 (Version 1)
Quarter: 2019Q3

REPORT INFORMATION
  Report Type: Spontaneous
  Country: CA (occurrence: CA)
  Receive Date: 20190907
  Receipt Date: 20190907
  Transmission Date: 20191005
  Serious: Yes (Disabling, Other)
  Sender: FDA-Public Use
  Company Number: CA-AUROBINDO-AUR-APL-2019-057891

PATIENT

DRUGS (2)
  1. RAMIPRIL. [Suspect]
     Active Substance: RAMIPRIL
     Indication: HYPERTENSION
     Dosage: 5 MILLIGRAM, TWO TIMES A DAY
     Route: 048
  2. RAMIPRIL. [Suspect]
     Active Substance: RAMIPRIL
     Dosage: 10 MILLIGRAM, DAILY
     Route: 048

REACTIONS (7)
  - Blood test abnormal [Unknown]
  - Dizziness [Unknown]
  - Cardiovascular disorder [Unknown]
  - Amnesia [Unknown]
  - Syncope [Unknown]
  - Brain injury [Unknown]
  - Hypotension [Unknown]
